FAERS Safety Report 13025707 (Version 1)
Quarter: 2016Q4

REPORT INFORMATION
  Report Type: Spontaneous
  Country: US (occurrence: US)
  Receive Date: 20161214
  Receipt Date: 20161214
  Transmission Date: 20170207
  Serious: Yes (Other)
  Sender: FDA-Public Use
  Company Number: US-SUN PHARMACEUTICAL INDUSTRIES LTD-2016US-129180

PATIENT
  Age: 14 Year
  Sex: Male

DRUGS (1)
  1. ABSORICA [Suspect]
     Active Substance: ISOTRETINOIN
     Indication: ACNE
     Dosage: 30 MG, QD
     Route: 065
     Dates: start: 2016, end: 20161128

REACTIONS (4)
  - Loss of consciousness [Unknown]
  - Blood magnesium decreased [Unknown]
  - Inappropriate schedule of drug administration [Recovered/Resolved]
  - Dizziness [Not Recovered/Not Resolved]

NARRATIVE: CASE EVENT DATE: 2016
